FAERS Safety Report 6829179-9 (Version None)
Quarter: 2010Q3

REPORT INFORMATION
  Report Type: 
  Country: None (occurrence: None)
  Receive Date: 20100709
  Receipt Date: 20070305
  Transmission Date: 20110219
  Serious: No
  Sender: FDA-Public Use
  Company Number: US-PFIZER INC-2007018941

PATIENT
  Sex: Male
  Weight: 88.45 kg

DRUGS (4)
  1. CHANTIX [Suspect]
     Indication: SMOKING CESSATION THERAPY
     Dates: start: 20070201
  2. PROSCAR [Concomitant]
     Indication: PROSTATOMEGALY
  3. TAMSULOSIN HCL [Concomitant]
     Indication: PROSTATOMEGALY
  4. ANTI-SMOKING AGENTS [Concomitant]
     Indication: SMOKING CESSATION THERAPY

REACTIONS (1)
  - HEADACHE [None]
